FAERS Safety Report 9944101 (Version 1)
Quarter: 2014Q1

REPORT INFORMATION
  Report Type: Spontaneous
  Country: US (occurrence: US)
  Receive Date: 20140303
  Receipt Date: 20140303
  Transmission Date: 20141002
  Serious: No
  Sender: FDA-Public Use
  Company Number: US-ABBVIE-13P-163-1056819-00

PATIENT
  Age: 49 Year
  Sex: Male

DRUGS (4)
  1. HUMIRA [Suspect]
     Indication: CROHN^S DISEASE
     Dates: start: 201009, end: 201109
  2. HUMIRA [Suspect]
     Dates: start: 201109, end: 201209
  3. CIMZIA [Suspect]
     Indication: CROHN^S DISEASE
     Dates: start: 201209
  4. MERCAPTOPURINE [Suspect]
     Indication: CROHN^S DISEASE

REACTIONS (5)
  - Gingival inflammation [Not Recovered/Not Resolved]
  - Tooth abscess [Recovered/Resolved]
  - Bone loss [Not Recovered/Not Resolved]
  - Periodontal disease [Not Recovered/Not Resolved]
  - Gingival bleeding [Not Recovered/Not Resolved]
